FAERS Safety Report 12626081 (Version 1)
Quarter: 2016Q3

REPORT INFORMATION
  Report Type: Spontaneous
  Country: HU (occurrence: HU)
  Receive Date: 20160805
  Receipt Date: 20160805
  Transmission Date: 20161109
  Serious: Yes (Other)
  Sender: FDA-Public Use
  Company Number: HU-SA-2016SA134579

PATIENT
  Age: 13 Year
  Sex: Male

DRUGS (1)
  1. MABCAMPATH [Suspect]
     Active Substance: ALEMTUZUMAB
     Indication: PREMEDICATION
     Route: 065
     Dates: start: 201109

REACTIONS (8)
  - Herpes simplex [Recovered/Resolved]
  - Stomatitis [Recovered/Resolved]
  - Cheilitis [Unknown]
  - Conjunctivitis [Not Recovered/Not Resolved]
  - Lip blister [Unknown]
  - Inflammatory myofibroblastic tumour [Unknown]
  - Off label use [Unknown]
  - Blister [Unknown]
